FAERS Safety Report 14337979 (Version 8)
Quarter: 2024Q2

REPORT INFORMATION
  Report Type: Report from Study
  Country: JP (occurrence: JP)
  Receive Date: 20171229
  Receipt Date: 20240606
  Transmission Date: 20240715
  Serious: Yes (Other)
  Sender: FDA-Public Use
  Company Number: JP-ABBVIE-17K-087-2204125-00

PATIENT
  Age: 77 Year
  Sex: Female
  Weight: 50 kg

DRUGS (14)
  1. CARBIDOPA\LEVODOPA [Suspect]
     Active Substance: CARBIDOPA\LEVODOPA
     Indication: Parkinson^s disease
     Dosage: MD: 8 ML, CD: 2.6 ML/HR X 16 HR
     Route: 050
     Dates: start: 20170515, end: 20170523
  2. CARBIDOPA\LEVODOPA [Suspect]
     Active Substance: CARBIDOPA\LEVODOPA
     Dosage: MD: 10 ML, CD: 1.7 ML/HR X 16 HR, ED: 1 ML/UNIT X5
     Route: 050
     Dates: start: 20170524, end: 20170919
  3. CARBIDOPA\LEVODOPA [Suspect]
     Active Substance: CARBIDOPA\LEVODOPA
     Dosage: MD: 10 ML, CD: 1.5 ML/HR X 16 HR, ED: 1 ML/UNIT X5
     Route: 050
     Dates: start: 20170919, end: 20180515
  4. CARBIDOPA\LEVODOPA [Suspect]
     Active Substance: CARBIDOPA\LEVODOPA
     Dosage: MD: 1 ML, CD: 1.3 ML/HR ? 16 HRS, ED: 1 ML/UNIT ? 5
     Route: 050
     Dates: start: 20180515, end: 20190430
  5. CARBIDOPA\LEVODOPA [Suspect]
     Active Substance: CARBIDOPA\LEVODOPA
     Dosage: MD: 1 ML, CD: 1.5 ML/HR ? 16 HRS, ED: 1 ML/UNIT ? 5
     Route: 050
     Dates: start: 20190430, end: 20190820
  6. CARBIDOPA\LEVODOPA [Suspect]
     Active Substance: CARBIDOPA\LEVODOPA
     Dosage: MD: 1 ML, CD: 1.3 ML/HR ? 16 HRS, ED: 1 ML/UNIT ? 5
     Route: 050
     Dates: start: 20190820
  7. AMANTADINE HYDROCHLORIDE [Concomitant]
     Active Substance: AMANTADINE HYDROCHLORIDE
     Indication: Parkinson^s disease
     Route: 048
     Dates: start: 20170722, end: 20170822
  8. LOXOPROFEN SODIUM DIHYDRATE [Concomitant]
     Active Substance: LOXOPROFEN SODIUM DIHYDRATE
     Indication: Stoma site pain
     Route: 048
     Dates: end: 20180313
  9. LOXOPROFEN SODIUM DIHYDRATE [Concomitant]
     Active Substance: LOXOPROFEN SODIUM DIHYDRATE
     Indication: Stoma site pain
     Route: 048
     Dates: start: 20180313
  10. REBAMIPIDE [Concomitant]
     Active Substance: REBAMIPIDE
     Indication: Product used for unknown indication
     Route: 048
     Dates: start: 20180313
  11. MAGNESIUM OXIDE [Concomitant]
     Active Substance: MAGNESIUM OXIDE
     Indication: Product used for unknown indication
     Route: 048
     Dates: end: 20180313
  12. MAGNESIUM OXIDE [Concomitant]
     Active Substance: MAGNESIUM OXIDE
     Indication: Product used for unknown indication
     Route: 048
     Dates: start: 20180313
  13. VONOPRAZAN FUMARATE [Concomitant]
     Active Substance: VONOPRAZAN FUMARATE
     Indication: Product used for unknown indication
     Route: 048
     Dates: start: 20170822
  14. PREGABALIN [Concomitant]
     Active Substance: PREGABALIN
     Indication: Product used for unknown indication
     Route: 048
     Dates: end: 20171010

REACTIONS (7)
  - Peritonitis [Recovering/Resolving]
  - Drug ineffective [Not Recovered/Not Resolved]
  - Excessive granulation tissue [Not Recovered/Not Resolved]
  - Stoma site pain [Recovering/Resolving]
  - Stoma site hypergranulation [Not Recovered/Not Resolved]
  - Wrong technique in device usage process [Unknown]
  - Dyskinesia [Recovered/Resolved]

NARRATIVE: CASE EVENT DATE: 20170524
